FAERS Safety Report 6413085-8 (Version None)
Quarter: 2009Q4

REPORT INFORMATION
  Report Type: 
  Country: None (occurrence: None)
  Receive Date: 20091022
  Receipt Date: 20091022
  Transmission Date: 20100525
  Serious: Yes (Death, Hospitalization)
  Sender: FDA-Public Use
  Company Number: None

PATIENT
  Age: 78 Year
  Sex: Female
  Weight: 63.5036 kg

DRUGS (2)
  1. AMIODARONE HCL [Suspect]
     Indication: ATRIAL FIBRILLATION
     Dosage: 1X DAY
     Dates: start: 20081101, end: 20090710
  2. PROPOFOL [Suspect]
     Indication: SEDATIVE THERAPY
     Dosage: CONTINUOUS IV
     Route: 042
     Dates: start: 20090710, end: 20090720

REACTIONS (7)
  - ATRIAL FIBRILLATION [None]
  - BRAIN INJURY [None]
  - CARDIAC ARREST [None]
  - CEREBRAL THROMBOSIS [None]
  - FALL [None]
  - HIP FRACTURE [None]
  - THROMBOSIS [None]
